FAERS Safety Report 9372940 (Version 1)
Quarter: 2013Q2

REPORT INFORMATION
  Report Type: Spontaneous
  Country: US (occurrence: US)
  Receive Date: 20130627
  Receipt Date: 20130627
  Transmission Date: 20140414
  Serious: Yes (Disabling)
  Sender: FDA-Public Use
  Company Number: PHEH2013US013744

PATIENT
  Age: 62 Year
  Sex: Male
  Weight: 75.74 kg

DRUGS (3)
  1. ZORTRESS [Suspect]
     Indication: CORONARY ARTERY DISEASE
     Dosage: UNK UKN, UNK
  2. COATED ASPIRIN [Concomitant]
     Dosage: 8 UKN, UNK
     Route: 048
  3. BENICAR [Concomitant]
     Indication: HYPERTENSION
     Dosage: 40 MG, UNK
     Route: 048

REACTIONS (4)
  - Ageusia [Not Recovered/Not Resolved]
  - Fatigue [Not Recovered/Not Resolved]
  - Decreased appetite [Unknown]
  - Malaise [Unknown]
